FAERS Safety Report 18656292 (Version 1)
Quarter: 2020Q4

REPORT INFORMATION
  Report Type: Spontaneous
  Country: LU (occurrence: LU)
  Receive Date: 20201223
  Receipt Date: 20201223
  Transmission Date: 20210114
  Serious: Yes (Hospitalization)
  Sender: FDA-Public Use
  Company Number: LU-FERRINGPH-2020FE09031

PATIENT
  Age: 65 Year
  Sex: Female
  Weight: 165 kg

DRUGS (21)
  1. BISOPROLOL EG [Suspect]
     Active Substance: BISOPROLOL
     Indication: PRODUCT USED FOR UNKNOWN INDICATION
     Dosage: 0.5 DF, 1 TIME DAILY
     Route: 048
     Dates: end: 20201029
  2. MOVICOL NEUTRAL [Suspect]
     Active Substance: POLYETHYLENE GLYCOL 3350\POTASSIUM CHLORIDE\SODIUM BICARBONATE\SODIUM CHLORIDE
     Indication: CONSTIPATION
     Dosage: 2 DF, 1 TIME DAILY
     Route: 048
     Dates: start: 20201021, end: 20201026
  3. LANTUS [Concomitant]
     Active Substance: INSULIN GLARGINE
     Indication: DIABETES MELLITUS
     Dosage: 18 IU, 1 TIME DAILY
     Route: 058
     Dates: end: 20201124
  4. NOVORAPID [Concomitant]
     Active Substance: INSULIN ASPART
     Indication: DIABETES MELLITUS
     Route: 058
     Dates: end: 20201124
  5. EUTHYROX [Concomitant]
     Active Substance: LEVOTHYROXINE SODIUM
     Indication: HYPOTHYROIDISM
     Dosage: 100 UG, 1 TIME DAILY
     Route: 048
     Dates: end: 20201026
  6. EUTHYROX [Concomitant]
     Active Substance: LEVOTHYROXINE SODIUM
     Dosage: 125 UG, 1 TIME DAILY
     Route: 048
     Dates: start: 20201027, end: 20201104
  7. FORXIGA [Suspect]
     Active Substance: DAPAGLIFLOZIN
     Indication: DIABETES MELLITUS
     Dosage: 5 MG, 1 TIME DAILY
     Route: 048
     Dates: end: 20201025
  8. BETMIGA [Suspect]
     Active Substance: MIRABEGRON
     Indication: PRODUCT USED FOR UNKNOWN INDICATION
     Dosage: 50 MG, 1 TIME DAILY
     Route: 048
     Dates: start: 20201021, end: 20201029
  9. EFFEXOR [Suspect]
     Active Substance: VENLAFAXINE HYDROCHLORIDE
     Indication: DEPRESSION
     Dosage: 1 DF, 1 TIME DAILY
     Route: 048
     Dates: end: 20201029
  10. ERYTHROCINE [ERYTHROMYCIN] [Suspect]
     Active Substance: ERYTHROMYCIN
     Indication: PROPHYLAXIS AGAINST GASTROINTESTINAL ULCER
     Dosage: 2 DF
     Route: 042
  11. ASAFLOW [Suspect]
     Active Substance: ASPIRIN
     Indication: THROMBOSIS PROPHYLAXIS
     Dosage: 1 DF, 1 TIME DAILY
     Route: 048
     Dates: end: 20201029
  12. ZELITREX [Suspect]
     Active Substance: VALACYCLOVIR HYDROCHLORIDE
     Indication: HERPES ZOSTER
     Route: 065
     Dates: start: 20201023, end: 20201027
  13. ROCEPHINE [Suspect]
     Active Substance: CEFTRIAXONE SODIUM
     Indication: URINARY TRACT INFECTION
     Route: 051
     Dates: start: 20201023, end: 20201025
  14. PARACETAMOL B BRAUN [Concomitant]
     Active Substance: ACETAMINOPHEN
     Indication: PAIN
     Dosage: 1 G, 4 TIMES DAILY (6H)
     Route: 042
     Dates: start: 20201021, end: 20201125
  15. NOVALGIN (METAMIZOLE SODIUM) [Suspect]
     Active Substance: METAMIZOLE SODIUM
     Indication: PAIN
     Dosage: 1 G, 4 TIMES DAILY (6 H)
     Route: 042
     Dates: start: 20201021, end: 20201026
  16. LIPITOR [Suspect]
     Active Substance: ATORVASTATIN CALCIUM
     Indication: HYPERCHOLESTEROLAEMIA
     Dosage: 40 MG, 1 TIME DAILY
     Route: 048
     Dates: start: 20190930, end: 20201026
  17. CLEXANE [Concomitant]
     Active Substance: ENOXAPARIN SODIUM
     Indication: THROMBOSIS PROPHYLAXIS
     Dosage: 40 MG, 1 TIME DAILY
     Route: 058
     Dates: start: 20201021, end: 20201125
  18. PICOPREP [Suspect]
     Active Substance: ANHYDROUS CITRIC ACID\MAGNESIUM OXIDE\SODIUM PICOSULFATE
     Indication: CONSTIPATION
     Dosage: 1 DF, ONCE/SINGLE
     Route: 048
     Dates: start: 20201022, end: 20201022
  19. LYRICA [Suspect]
     Active Substance: PREGABALIN
     Indication: NEURALGIA
     Dosage: 1 DF, 2 TIMES DAILY (12 H)
     Route: 048
     Dates: end: 20201029
  20. PIPERACILLIN/TAZOBACTAM KABI [PIPERACILLIN SODIUM;TAZOBACTAM SODIUM] [Suspect]
     Active Substance: PIPERACILLIN SODIUM\TAZOBACTAM SODIUM
     Indication: URINARY TRACT INFECTION
     Dosage: 1 G, 3 TIMES DAILY (8 H)
     Route: 042
     Dates: start: 20201025, end: 20201126
  21. NEXIAM [ESOMEPRAZOLE MAGNESIUM] [Concomitant]
     Active Substance: ESOMEPRAZOLE MAGNESIUM
     Indication: PROPHYLAXIS AGAINST GASTROINTESTINAL ULCER
     Dosage: 1 DF, 1 TIME DAILY
     Route: 048
     Dates: end: 20201124

REACTIONS (2)
  - Product use in unapproved indication [Recovered/Resolved]
  - Diabetic ketoacidosis [Recovering/Resolving]

NARRATIVE: CASE EVENT DATE: 20201022
